FAERS Safety Report 7923734-0 (Version None)
Quarter: 2011Q4

REPORT INFORMATION
  Report Type: 
  Country: None (occurrence: None)
  Receive Date: 20111117
  Receipt Date: 20110208
  Transmission Date: 20120403
  Serious: No
  Sender: FDA-Public Use
  Company Number: US-AMGEN-USASP2011007457

PATIENT
  Age: 64 Year
  Sex: Female

DRUGS (1)
  1. ENBREL [Suspect]
     Indication: RHEUMATOID ARTHRITIS
     Dosage: 50 MG, QWK
     Dates: start: 20110127

REACTIONS (9)
  - RECTAL HAEMORRHAGE [None]
  - NASAL DISCOMFORT [None]
  - DRUG INEFFECTIVE [None]
  - PRODUCTIVE COUGH [None]
  - NASOPHARYNGITIS [None]
  - LOWER RESPIRATORY TRACT INFECTION [None]
  - LABORATORY TEST ABNORMAL [None]
  - RHEUMATOID ARTHRITIS [None]
  - CHEILITIS [None]
